FAERS Safety Report 8413633-2 (Version None)
Quarter: 2012Q2

REPORT INFORMATION
  Report Type: 
  Country: None (occurrence: None)
  Receive Date: 20120605
  Receipt Date: 20120530
  Transmission Date: 20120825
  Serious: Yes (Hospitalization)
  Sender: FDA-Public Use
  Company Number: PHHY2012US046634

PATIENT
  Age: 2 Year
  Sex: Female

DRUGS (7)
  1. ILARIS [Suspect]
  2. FOLIC ACID [Concomitant]
  3. KINERET [Concomitant]
     Indication: JUVENILE ARTHRITIS
     Dosage: 1 DF, QD
     Route: 058
     Dates: start: 20080112, end: 20110104
  4. PREDNISONE [Concomitant]
  5. NAPROXEN [Concomitant]
  6. NEORAL [Suspect]
  7. METHOTREXATE [Concomitant]

REACTIONS (8)
  - LYMPHADENOPATHY [None]
  - THERAPEUTIC PRODUCT INEFFECTIVE [None]
  - HISTIOCYTOSIS HAEMATOPHAGIC [None]
  - CONDITION AGGRAVATED [None]
  - EOSINOPHILIA [None]
  - BRONCHIECTASIS [None]
  - JUVENILE ARTHRITIS [None]
  - CLUBBING [None]
